FAERS Safety Report 18922555 (Version 1)
Quarter: 2021Q1

REPORT INFORMATION
  Report Type: Other
  Country: GB (occurrence: GB)
  Receive Date: 20210222
  Receipt Date: 20210222
  Transmission Date: 20210420
  Serious: Yes (Other)
  Sender: FDA-Public Use
  Company Number: GB-MACLEODS PHARMA UK LTD-MAC2021030214

PATIENT

DRUGS (2)
  1. ARIPIPRAZOLE  5 MG [Suspect]
     Active Substance: ARIPIPRAZOLE
     Indication: SCHIZOAFFECTIVE DISORDER
     Dosage: 5 MILLIGRAM
     Route: 048
     Dates: start: 20200914, end: 20201113
  2. OLANZAPINE. [Concomitant]
     Active Substance: OLANZAPINE
     Indication: ILL-DEFINED DISORDER
     Dosage: UNK UNK, QD, 2.5MG OR 5 MG
     Route: 065
     Dates: start: 2010

REACTIONS (8)
  - Chills [Not Recovered/Not Resolved]
  - Decreased appetite [Not Recovered/Not Resolved]
  - Nausea [Not Recovered/Not Resolved]
  - Adverse drug reaction [Not Recovered/Not Resolved]
  - Night sweats [Not Recovered/Not Resolved]
  - Anxiety [Not Recovered/Not Resolved]
  - Insomnia [Not Recovered/Not Resolved]
  - Hyperhidrosis [Not Recovered/Not Resolved]

NARRATIVE: CASE EVENT DATE: 20200917
